FAERS Safety Report 8582610 (Version 4)
Quarter: 2012Q4

REPORT INFORMATION
  Report Type: 
  Country: JP (occurrence: JP)
  Receive Date: 20120529
  Receipt Date: 20121227
  Transmission Date: 20130627
  Serious: Yes (Other)
  Sender: FDA-Public Use
  Company Number: JP-JNJFOC-20120518733

PATIENT
  Age: 65 Year
  Sex: Male

DRUGS (8)
  1. TRAMCET [Suspect]
     Indication: PAIN
     Dosage: 1 DF x 1 per 1 day
     Route: 048
     Dates: start: 20120409, end: 20120411
  2. TRAMCET [Suspect]
     Indication: PAIN
     Dosage: 2 DF x 1 per 1 day / tablet
     Route: 048
     Dates: start: 20120412, end: 20120415
  3. TRAMCET [Suspect]
     Indication: PAIN
     Dosage: 3 DF x 1 per 1 day
     Route: 048
     Dates: start: 20120416, end: 20120517
  4. PRORENAL [Concomitant]
     Route: 048
  5. VOLTAREN SR [Concomitant]
     Route: 048
  6. RINLAXER [Concomitant]
     Route: 048
  7. TERNELIN [Concomitant]
     Route: 048
  8. UNKNOWN MEDICATION [Concomitant]
     Indication: HYPERTENSION
     Route: 065

REACTIONS (4)
  - Dyspnoea [Recovered/Resolved]
  - Lip discolouration [Recovered/Resolved]
  - Hot flush [Recovered/Resolved]
  - Ocular hyperaemia [Recovered/Resolved]
